FAERS Safety Report 8976997 (Version 1)
Quarter: 2012Q4

REPORT INFORMATION
  Report Type: 
  Country: US (occurrence: US)
  Receive Date: 20121220
  Receipt Date: 20121220
  Transmission Date: 20130627
  Serious: Yes (Other)
  Sender: FDA-Public Use
  Company Number: US-GLAXOSMITHKLINE-A0980476A

PATIENT
  Age: 67 Year
  Sex: Male

DRUGS (2)
  1. SORIATANE [Suspect]
     Indication: PSORIASIS
     Dosage: 25MG Per day
     Route: 048
     Dates: start: 2011
  2. CIPRO [Suspect]
     Indication: ARTHRITIS INFECTIVE
     Dosage: 500MG Twice per day
     Route: 048
     Dates: start: 20120409

REACTIONS (2)
  - Hepatic enzyme increased [Unknown]
  - Drug interaction [Unknown]
